FAERS Safety Report 7302304-1 (Version None)
Quarter: 2011Q1

REPORT INFORMATION
  Report Type: 
  Country: None (occurrence: None)
  Receive Date: 20110218
  Receipt Date: 20110216
  Transmission Date: 20110831
  Serious: Yes (Other)
  Sender: FDA-Public Use
  Company Number: BR-GENZYME-FLUD-1000733

PATIENT
  Age: 76 Year
  Sex: Female

DRUGS (6)
  1. METHOTREXATE [Concomitant]
     Indication: PROPHYLAXIS AGAINST GRAFT VERSUS HOST DISEASE
     Dosage: 5 MG/M2, ON DAYS 1,3,6,11 POST TRANSPLANT
     Route: 065
  2. FILGRASTIM [Concomitant]
     Indication: NEUTROPENIA
     Dosage: 5 UG/KG FROM DAY +2 UNTIL ANC MET REQUIREMENTS
     Route: 065
  3. BUSULFAN [Suspect]
     Indication: STEM CELL TRANSPLANT
     Dosage: 130 MG/M2 OVER 3 HRS, QD (DAYS -6 TO -3)
     Route: 042
  4. PHENYTOIN [Concomitant]
     Indication: PROPHYLAXIS
     Route: 065
  5. TACROLIMUS [Concomitant]
     Indication: PROPHYLAXIS AGAINST GRAFT VERSUS HOST DISEASE
     Route: 065
  6. FLUDARA [Suspect]
     Indication: STEM CELL TRANSPLANT
     Dosage: 40 MG/M2, OVER 60 MINUTES QDX4
     Route: 042

REACTIONS (1)
  - CHRONIC GRAFT VERSUS HOST DISEASE [None]
